FAERS Safety Report 18232562 (Version 4)
Quarter: 2020Q4

REPORT INFORMATION
  Report Type: Spontaneous
  Country: US (occurrence: US)
  Receive Date: 20200904
  Receipt Date: 20201021
  Transmission Date: 20210113
  Serious: No
  Sender: FDA-Public Use
  Company Number: US-PFIZER INC-2020343018

PATIENT
  Age: 56 Year
  Sex: Female

DRUGS (2)
  1. IBRANCE [Suspect]
     Active Substance: PALBOCICLIB
     Indication: BREAST CANCER FEMALE
     Dosage: 125 MG, CYCLIC (125 MG D FOR 21 DAYS THEN 7 DAYS OFF)
     Dates: start: 20200714, end: 202007
  2. IBRANCE [Suspect]
     Active Substance: PALBOCICLIB
     Dosage: 125 MG, CYCLIC (125 MG QD X21 DAYS Q 28 DAYS)
     Dates: start: 20200715

REACTIONS (8)
  - Abdominal discomfort [Recovering/Resolving]
  - Alopecia [Unknown]
  - Vomiting [Unknown]
  - Stomatitis [Recovering/Resolving]
  - Depressed mood [Unknown]
  - Fatigue [Unknown]
  - Affect lability [Unknown]
  - Rash [Unknown]

NARRATIVE: CASE EVENT DATE: 202009
